FAERS Safety Report 24923769 (Version 1)
Quarter: 2025Q1

REPORT INFORMATION
  Report Type: Spontaneous
  Country: US (occurrence: US)
  Receive Date: 20250204
  Receipt Date: 20250204
  Transmission Date: 20250409
  Serious: No
  Sender: TOLMAR
  Company Number: US-TOLMAR, INC.-25US056109

PATIENT

DRUGS (2)
  1. FENSOLVI [Suspect]
     Active Substance: LEUPROLIDE ACETATE
     Indication: Precocious puberty
  2. FENSOLVI [Suspect]
     Active Substance: LEUPROLIDE ACETATE

REACTIONS (2)
  - Injection site mass [Recovering/Resolving]
  - Injection site swelling [Recovering/Resolving]
